FAERS Safety Report 24266288 (Version 1)
Quarter: 2024Q3

REPORT INFORMATION
  Report Type: Spontaneous
  Country: US (occurrence: None)
  Receive Date: 20240830
  Receipt Date: 20240830
  Transmission Date: 20241017
  Serious: No
  Sender: ENCUBE ETHICALS
  Company Number: US-Encube-001292

PATIENT
  Sex: Female

DRUGS (3)
  1. FLUOCINONIDE [Suspect]
     Active Substance: FLUOCINONIDE
     Indication: Rash
     Dosage: SOLUTION
  2. METHADONE [Concomitant]
     Active Substance: METHADONE HYDROCHLORIDE
     Indication: Back pain
     Dosage: CUT DOWN DOSE FROM 60 MG PER DAY TO 40 MG PER DAY
  3. ESZOPICLONE [Concomitant]
     Active Substance: ESZOPICLONE
     Indication: Sleep disorder
     Dosage: TOOK ONE WHEN REQUIRED

REACTIONS (2)
  - Alopecia [Unknown]
  - Skin haemorrhage [Unknown]
